FAERS Safety Report 18007018 (Version 5)
Quarter: 2020Q4

REPORT INFORMATION
  Report Type: Report from Study
  Country: US (occurrence: US)
  Receive Date: 20200710
  Receipt Date: 20201019
  Transmission Date: 20210113
  Serious: Yes (Death, Hospitalization, Other)
  Sender: FDA-Public Use
  Company Number: US-AGIOS-2007US02025

PATIENT

DRUGS (1)
  1. TIBSOVO [Suspect]
     Active Substance: IVOSIDENIB
     Indication: CHOLANGIOCARCINOMA
     Dosage: 250MG, 2 TABLETS (500MG) DAILY
     Route: 048
     Dates: start: 20200611, end: 20200803

REACTIONS (9)
  - Nausea [Unknown]
  - Pain [Unknown]
  - Vomiting [Unknown]
  - Bradycardia [Unknown]
  - Death [Fatal]
  - Hepatic pain [Unknown]
  - Off label use [Recovered/Resolved]
  - Heart rate irregular [Unknown]
  - Dysphagia [Unknown]

NARRATIVE: CASE EVENT DATE: 20200611
